FAERS Safety Report 9963958 (Version 2)
Quarter: 2014Q1

REPORT INFORMATION
  Report Type: Report from Study
  Country: CA (occurrence: CA)
  Receive Date: 20140305
  Receipt Date: 20140305
  Transmission Date: 20141002
  Serious: Yes (Hospitalization)
  Sender: FDA-Public Use
  Company Number: CA-ABBVIE-10P-028-0623435-00

PATIENT
  Age: 29 Year
  Sex: Male
  Weight: 104 kg

DRUGS (6)
  1. HUMIRA [Suspect]
     Indication: CROHN^S DISEASE
     Route: 058
     Dates: start: 20080208
  2. HUMIRA [Suspect]
     Route: 058
     Dates: start: 20090909
  3. CIPRALEX [Concomitant]
     Indication: DEPRESSION
     Dates: start: 200610, end: 20081219
  4. CIPRALEX [Concomitant]
     Dates: start: 20081220
  5. IMURAN [Concomitant]
     Indication: CROHN^S DISEASE
     Dates: start: 20080414, end: 20080429
  6. BUPROPION [Concomitant]
     Indication: DEPRESSION
     Dates: start: 20090730

REACTIONS (1)
  - Small intestinal obstruction [Recovered/Resolved]
